FAERS Safety Report 8520798-0 (Version None)
Quarter: 2012Q3

REPORT INFORMATION
  Report Type: 
  Country: None (occurrence: None)
  Receive Date: 20120719
  Receipt Date: 20120710
  Transmission Date: 20120928
  Serious: Yes (Other)
  Sender: FDA-Public Use
  Company Number: US-009507513-1207USA005419

PATIENT

DRUGS (1)
  1. REBETOL [Suspect]
     Indication: HEPATITIS C
     Dosage: UNK
     Dates: start: 20100701, end: 20100801

REACTIONS (4)
  - MYOCARDIAL INFARCTION [None]
  - FATIGUE [None]
  - DYSGEUSIA [None]
  - INFLUENZA LIKE ILLNESS [None]
